FAERS Safety Report 4926221-7 (Version None)
Quarter: 2006Q1

REPORT INFORMATION
  Report Type: 
  Country: None (occurrence: None)
  Receive Date: 20060224
  Receipt Date: 20060224
  Transmission Date: 20060701
  Serious: Yes (Hospitalization, Other)
  Sender: FDA-Public Use
  Company Number: None

PATIENT
  Sex: Female
  Weight: 126.8 kg

DRUGS (2)
  1. GEMCITABINE [Suspect]
     Indication: BREAST CANCER
     Dosage: 2800 MG
  2. PACLITAXEL [Suspect]
     Dosage: 370 MG

REACTIONS (3)
  - DYSPNOEA [None]
  - FATIGUE [None]
  - HAEMOGLOBIN DECREASED [None]
